FAERS Safety Report 10647458 (Version 2)
Quarter: 2014Q4

REPORT INFORMATION
  Report Type: Spontaneous
  Country: US (occurrence: US)
  Receive Date: 20141211
  Receipt Date: 20141211
  Transmission Date: 20150529
  Serious: No
  Sender: FDA-Public Use
  Company Number: US-GLAXOSMITHKLINE-A1090187A

PATIENT
  Age: 55 Year
  Sex: Male

DRUGS (2)
  1. AVODART [Suspect]
     Active Substance: DUTASTERIDE
     Indication: BENIGN PROSTATIC HYPERPLASIA
     Route: 048
     Dates: start: 2006
  2. NO CONCURRENT MEDICATION [Concomitant]
     Active Substance: UNSPECIFIED INGREDIENT

REACTIONS (4)
  - Drug ineffective [Unknown]
  - Benign prostatic hyperplasia [Not Recovered/Not Resolved]
  - Product quality issue [Unknown]
  - Discomfort [Unknown]

NARRATIVE: CASE EVENT DATE: 20140901
